FAERS Safety Report 17870123 (Version 1)
Quarter: 2020Q2

REPORT INFORMATION
  Report Type: Spontaneous
  Country: US (occurrence: US)
  Receive Date: 20200605
  Receipt Date: 20200605
  Transmission Date: 20200714
  Serious: Yes (Other)
  Sender: FDA-Public Use
  Company Number: None

PATIENT
  Age: 44 Year
  Sex: Male
  Weight: 85.5 kg

DRUGS (12)
  1. BUTRAN 20MGC/HR PATCH [Concomitant]
  2. PERCOCET [Concomitant]
     Active Substance: ACETAMINOPHEN\OXYCODONE HYDROCHLORIDE
  3. DESVENLAFAXINE 100MG [Concomitant]
     Active Substance: DESVENLAFAXINE
  4. CLOPIDOGREL [Concomitant]
     Active Substance: CLOPIDOGREL BISULFATE
  5. CRESTOR [Concomitant]
     Active Substance: ROSUVASTATIN CALCIUM
  6. TESTOSTERONE INJECTION [Concomitant]
     Active Substance: TESTOSTERONE
  7. BUPROPION XL 300MG [Concomitant]
     Active Substance: BUPROPION
  8. HUMIRA [Concomitant]
     Active Substance: ADALIMUMAB
  9. METOPROLOL TARTRATE 25MG [Concomitant]
     Active Substance: METOPROLOL TARTRATE
  10. CLONAZEPAM 0.5MG [Concomitant]
     Active Substance: CLONAZEPAM
  11. BENZTROPINE 1MG [Concomitant]
     Active Substance: BENZTROPINE
  12. AUSTEDO [Suspect]
     Active Substance: DEUTETRABENAZINE
     Indication: TARDIVE DYSKINESIA
     Route: 048
     Dates: start: 20200513, end: 20200519

REACTIONS (1)
  - Hallucination, visual [None]

NARRATIVE: CASE EVENT DATE: 20200605
